FAERS Safety Report 9548909 (Version 2)
Quarter: 2014Q1

REPORT INFORMATION
  Report Type: Spontaneous
  Country: US (occurrence: US)
  Receive Date: 20130924
  Receipt Date: 20140211
  Transmission Date: 20141002
  Serious: Yes (Hospitalization)
  Sender: FDA-Public Use
  Company Number: US-SANOFI-AVENTIS-FABR-1003547

PATIENT
  Age: 26 Year
  Sex: Male
  Weight: 58.96 kg

DRUGS (5)
  1. FABRAZYME [Suspect]
     Indication: FABRY^S DISEASE
     Dosage: 60 U/KG, Q2W
     Route: 042
     Dates: start: 201201
  2. PARACETAMOL [Concomitant]
     Dosage: 1000 MG, UNK
  3. LORATADINE [Concomitant]
     Dosage: UNK
  4. ACE INHIBITOR NOS [Concomitant]
     Dosage: UNK
  5. CORTICOSTEROID NOS [Concomitant]

REACTIONS (1)
  - Renal failure chronic [Not Recovered/Not Resolved]
